FAERS Safety Report 6926505-7 (Version None)
Quarter: 2010Q3

REPORT INFORMATION
  Report Type: 
  Country: None (occurrence: None)
  Receive Date: 20100816
  Receipt Date: 20100806
  Transmission Date: 20110219
  Serious: Yes (Hospitalization)
  Sender: FDA-Public Use
  Company Number: US-ABBOTT-10P-163-0663123-00

PATIENT
  Sex: Male
  Weight: 105.33 kg

DRUGS (3)
  1. NIASPAN [Suspect]
     Indication: HIGH DENSITY LIPOPROTEIN DECREASED
     Dates: start: 20060501
  2. SIMVASTATIN [Suspect]
     Indication: PRODUCT USED FOR UNKNOWN INDICATION
  3. UNKNOWN DIABETES MEDICATIONS [Concomitant]
     Indication: DIABETES MELLITUS

REACTIONS (3)
  - ABDOMINAL DISCOMFORT [None]
  - FLATULENCE [None]
  - VERTIGO [None]
